FAERS Safety Report 24797579 (Version 3)
Quarter: 2025Q3

REPORT INFORMATION
  Report Type: Spontaneous
  Country: US (occurrence: US)
  Receive Date: 20250102
  Receipt Date: 20250718
  Transmission Date: 20251021
  Serious: Yes (Hospitalization, Other)
  Sender: SANOFI AVENTIS
  Company Number: US-SA-2024SA384996

PATIENT
  Age: 78 Year
  Sex: Female

DRUGS (14)
  1. REZUROCK [Suspect]
     Active Substance: BELUMOSUDIL
     Indication: Graft versus host disease
     Dosage: 200 MG, QD
     Route: 048
  2. FAMOTIDINE [Concomitant]
     Active Substance: FAMOTIDINE
  3. CRESEMBA [Concomitant]
     Active Substance: ISAVUCONAZONIUM SULFATE
  4. CRESEMBA [Concomitant]
     Active Substance: ISAVUCONAZONIUM SULFATE
  5. ATOVAQUONE [Concomitant]
     Active Substance: ATOVAQUONE
  6. ATOVAQUONE [Concomitant]
     Active Substance: ATOVAQUONE
  7. ACYCLOVIR [Concomitant]
     Active Substance: ACYCLOVIR
  8. ACYCLOVIR [Concomitant]
     Active Substance: ACYCLOVIR
  9. GABAPENTIN [Concomitant]
     Active Substance: GABAPENTIN
  10. LEXAPRO [Concomitant]
     Active Substance: ESCITALOPRAM OXALATE
  11. PREDNISONE [Concomitant]
     Active Substance: PREDNISONE
  12. SIROLIMUS [Concomitant]
     Active Substance: SIROLIMUS
  13. BACTRIM DS [Concomitant]
     Active Substance: SULFAMETHOXAZOLE\TRIMETHOPRIM
  14. CARBIDOPA AND LEVODOPA [Concomitant]
     Active Substance: CARBIDOPA\LEVODOPA

REACTIONS (3)
  - Pneumonia [Unknown]
  - Fall [Unknown]
  - Diarrhoea [Unknown]
